FAERS Safety Report 6430704-0 (Version None)
Quarter: 2009Q4

REPORT INFORMATION
  Report Type: 
  Country: None (occurrence: None)
  Receive Date: 20091104
  Receipt Date: 20091026
  Transmission Date: 20100525
  Serious: Yes (Other)
  Sender: FDA-Public Use
  Company Number: 232389J09USA

PATIENT
  Age: 54 Year
  Sex: Female
  Weight: 47 kg

DRUGS (3)
  1. REBIF [Suspect]
     Indication: MULTIPLE SCLEROSIS
     Dosage: 44 MCG, 3 IN 1 WEEKS; SUBCUTANEOUS
     Route: 058
     Dates: start: 20031023
  2. SPIRIVA [Concomitant]
  3. ASPIRIN (CODRAL COLD) [Concomitant]

REACTIONS (4)
  - BLOOD PRESSURE INCREASED [None]
  - BRONCHITIS [None]
  - PNEUMONIA PRIMARY ATYPICAL [None]
  - POLYCYTHAEMIA [None]
